FAERS Safety Report 18645863 (Version 1)
Quarter: 2020Q4

REPORT INFORMATION
  Report Type: Report from Study
  Country: US (occurrence: US)
  Receive Date: 20201222
  Receipt Date: 20201222
  Transmission Date: 20210114
  Serious: Yes (Hospitalization, Other)
  Sender: FDA-Public Use
  Company Number: US-TEVA-2020-US-1861314

PATIENT
  Age: 74 Year
  Sex: Male

DRUGS (1)
  1. CINQAIR [Suspect]
     Active Substance: RESLIZUMAB
     Route: 042
     Dates: start: 20200127

REACTIONS (4)
  - Malaise [Not Recovered/Not Resolved]
  - Balance disorder [Recovering/Resolving]
  - Fatigue [Not Recovered/Not Resolved]
  - Cerebrovascular accident [Recovering/Resolving]

NARRATIVE: CASE EVENT DATE: 20200127
